FAERS Safety Report 25636976 (Version 1)
Quarter: 2025Q3

REPORT INFORMATION
  Report Type: Spontaneous
  Country: CN (occurrence: CN)
  Receive Date: 20250804
  Receipt Date: 20250804
  Transmission Date: 20251021
  Serious: Yes (Hospitalization, Other)
  Sender: ROCHE
  Company Number: CN-ROCHE-10000349132

PATIENT
  Age: 57 Year
  Sex: Male

DRUGS (2)
  1. TECENTRIQ [Suspect]
     Active Substance: ATEZOLIZUMAB
     Indication: Neoplasm
     Route: 042
     Dates: start: 20250616, end: 20250616
  2. SODIUM CHLORIDE [Concomitant]
     Active Substance: SODIUM CHLORIDE

REACTIONS (14)
  - Pyrexia [Recovered/Resolved]
  - Cough [Unknown]
  - Productive cough [Unknown]
  - Asthenia [Unknown]
  - Myalgia [Unknown]
  - Heart rate increased [Unknown]
  - C-reactive protein increased [Unknown]
  - Procalcitonin increased [Unknown]
  - Pneumonitis [Unknown]
  - Red blood cell sedimentation rate increased [Unknown]
  - Neutrophil percentage decreased [Unknown]
  - Pleural thickening [Unknown]
  - Pleural effusion [Unknown]
  - Pulmonary fibrosis [Unknown]

NARRATIVE: CASE EVENT DATE: 20250625
